FAERS Safety Report 5295939-1 (Version None)
Quarter: 2007Q2

REPORT INFORMATION
  Report Type: 
  Country: None (occurrence: None)
  Receive Date: 20070413
  Receipt Date: 20070402
  Transmission Date: 20071010
  Serious: Yes (Death)
  Sender: FDA-Public Use
  Company Number: GBWYE318503APR07

PATIENT
  Age: 76 Year
  Sex: Female
  Weight: 105 kg

DRUGS (3)
  1. ENBREL [Suspect]
     Indication: RHEUMATOID ARTHRITIS
     Route: 058
     Dates: start: 20030507
  2. ENBREL [Suspect]
     Route: 058
     Dates: start: 20041127
  3. PREDNISOLONE [Concomitant]
     Indication: RHEUMATOID ARTHRITIS
     Dosage: 6MG, FREQUENCY UNKNOWN
     Route: 048

REACTIONS (5)
  - ANAEMIA [None]
  - AORTIC STENOSIS [None]
  - DYSPNOEA [None]
  - MYOCARDIAL ISCHAEMIA [None]
  - VENTRICULAR FAILURE [None]
